FAERS Safety Report 9186265 (Version 5)
Quarter: 2013Q3

REPORT INFORMATION
  Report Type: Report from Study
  Country: TW (occurrence: TW)
  Receive Date: 20130325
  Receipt Date: 20130708
  Transmission Date: 20140515
  Serious: Yes (Hospitalization)
  Sender: FDA-Public Use
  Company Number: TW-GLAXOSMITHKLINE-B0874927A

PATIENT
  Age: 72 Year
  Sex: Male
  Weight: 51 kg

DRUGS (16)
  1. FLUTICASONE FUROATE [Suspect]
     Indication: CHRONIC OBSTRUCTIVE PULMONARY DISEASE
     Dates: start: 20121024
  2. XANTHIUM [Concomitant]
     Indication: CHRONIC OBSTRUCTIVE PULMONARY DISEASE
     Route: 048
     Dates: start: 20120810
  3. ISOSORBIDE MONONITRATE [Concomitant]
     Indication: CORONARY ARTERY DISEASE
     Dosage: 40MG PER DAY
     Route: 048
     Dates: start: 20130121, end: 20130218
  4. ISOSORBIDE MONONITRATE [Concomitant]
     Dosage: 40MG PER DAY
     Dates: start: 20130301, end: 20130303
  5. SALICYLAMIDE [Concomitant]
     Indication: TINEA INFECTION
     Dosage: 2PCT TWICE PER DAY
     Route: 061
     Dates: start: 20121009
  6. TOPAL [Concomitant]
     Indication: GASTROOESOPHAGEAL REFLUX DISEASE
     Dosage: 400MG PER DAY
     Route: 048
     Dates: start: 20130121, end: 20130218
  7. TOPAL [Concomitant]
     Dosage: 200MG THREE TIMES PER DAY
     Route: 048
     Dates: start: 20130301, end: 20130303
  8. BUSPIRONE HYDROCHLORIDE [Concomitant]
     Indication: INSOMNIA
     Route: 048
     Dates: start: 20130121, end: 20130218
  9. EBASTINE [Concomitant]
     Indication: NASAL OBSTRUCTION
     Dosage: 10MG PER DAY
     Route: 048
     Dates: start: 20130121, end: 20130218
  10. EBASTINE [Concomitant]
     Dosage: 10MG PER DAY
     Dates: start: 20130301, end: 20130303
  11. MESNA [Concomitant]
     Indication: PRODUCTIVE COUGH
     Route: 055
     Dates: start: 20130121, end: 20130218
  12. THEOPHYLLINE [Concomitant]
     Indication: CHRONIC OBSTRUCTIVE PULMONARY DISEASE
     Dosage: 400MG TWICE PER DAY
     Dates: start: 20130121, end: 20130218
  13. THEOPHYLLINE [Concomitant]
     Dosage: 400MG PER DAY
     Dates: start: 20130301, end: 20130303
  14. GLIBENCLAMIDE [Concomitant]
     Indication: DIABETES MELLITUS
     Dosage: 5MG TWICE PER DAY
     Dates: start: 20130121, end: 20130218
  15. GLIBENCLAMIDE [Concomitant]
     Dosage: 5MG TWICE PER DAY
     Dates: start: 20130301, end: 20130303
  16. BUSPIRONE [Concomitant]
     Indication: INSOMNIA
     Dates: start: 20130301, end: 20130303

REACTIONS (1)
  - Chronic obstructive pulmonary disease [Recovered/Resolved]
